FAERS Safety Report 10161228 (Version 2)
Quarter: 2014Q2

REPORT INFORMATION
  Report Type: Report from Study
  Country: CA (occurrence: CA)
  Receive Date: 20140508
  Receipt Date: 20140611
  Transmission Date: 20141212
  Serious: Yes (Other)
  Sender: FDA-Public Use
  Company Number: PHHY2014CA055987

PATIENT
  Age: 74 Year
  Sex: Female

DRUGS (8)
  1. ACLASTA [Suspect]
     Indication: OSTEOPOROSIS
     Dosage: 5 MG, UNK
     Route: 042
     Dates: start: 20110310
  2. ACLASTA [Suspect]
     Dosage: 5 MG, UNK
     Route: 042
     Dates: start: 20120314
  3. ACLASTA [Suspect]
     Dosage: 5 MG, UNK
     Route: 042
     Dates: start: 20130404
  4. ACLASTA [Suspect]
     Dosage: UNK
     Route: 042
     Dates: start: 20140507
  5. APO CANDESARTAN [Concomitant]
     Dosage: UNK
  6. CALCIUM [Concomitant]
     Dosage: UNK
  7. VIT D [Concomitant]
     Dosage: UNK
  8. TYLENOL [Concomitant]
     Dosage: 3 UKN, PRN

REACTIONS (2)
  - Ocular ischaemic syndrome [Recovered/Resolved]
  - Dizziness [Unknown]
